FAERS Safety Report 8317711-8 (Version None)
Quarter: 2012Q2

REPORT INFORMATION
  Report Type: 
  Country: None (occurrence: None)
  Receive Date: 20120427
  Receipt Date: 20120417
  Transmission Date: 20120825
  Serious: Yes (Other)
  Sender: FDA-Public Use
  Company Number: US-PERRIGO-12US003422

PATIENT
  Sex: Male
  Weight: 73.469 kg

DRUGS (1)
  1. CALCIUM POLYCARBOPHIL 625 MG 477 [Suspect]
     Indication: BOWEL MOVEMENT IRREGULARITY
     Dosage: 625 MG, SINGLE
     Route: 048
     Dates: start: 20120417, end: 20120417

REACTIONS (2)
  - OBSTRUCTIVE AIRWAYS DISORDER [None]
  - DYSPNOEA [None]
